FAERS Safety Report 24913538 (Version 1)
Quarter: 2025Q1

REPORT INFORMATION
  Report Type: Spontaneous
  Country: US (occurrence: US)
  Receive Date: 20250201
  Receipt Date: 20250201
  Transmission Date: 20250408
  Serious: Yes (Hospitalization)
  Sender: MERCK
  Company Number: US-009507513-2501USA011418

PATIENT
  Sex: Female

DRUGS (14)
  1. KEYTRUDA [Suspect]
     Active Substance: PEMBROLIZUMAB
  2. CEFPODOXIME PROXETIL [Concomitant]
     Active Substance: CEFPODOXIME PROXETIL
  3. METOPROLOL SUCCINATE [Concomitant]
     Active Substance: METOPROLOL SUCCINATE
  4. LISINOPRIL [Concomitant]
     Active Substance: LISINOPRIL
  5. CALCIUM\CHOLECALCIFEROL [Concomitant]
     Active Substance: CALCIUM\CHOLECALCIFEROL
  6. VITAMIN D3 [Concomitant]
     Active Substance: CHOLECALCIFEROL
  7. COMPAZINE [Concomitant]
     Active Substance: PROCHLORPERAZINE MALEATE
  8. PRAVASTATIN SODIUM [Concomitant]
     Active Substance: PRAVASTATIN SODIUM
  9. OXYCODONE HYDROCHLORIDE [Concomitant]
     Active Substance: OXYCODONE HYDROCHLORIDE
  10. ONDANSETRON HYDROCHLORIDE [Concomitant]
     Active Substance: ONDANSETRON HYDROCHLORIDE
  11. MEGESTROL ACETATE [Concomitant]
     Active Substance: MEGESTROL ACETATE
  12. LEVOTHYROXINE SODIUM [Concomitant]
     Active Substance: LEVOTHYROXINE SODIUM
  13. ELIQUIS [Concomitant]
     Active Substance: APIXABAN
  14. ACETAMINOPHEN [Concomitant]
     Active Substance: ACETAMINOPHEN

REACTIONS (1)
  - Hypertension [Unknown]
